FAERS Safety Report 7679495-6 (Version None)
Quarter: 2011Q3

REPORT INFORMATION
  Report Type: 
  Country: None (occurrence: None)
  Receive Date: 20110812
  Receipt Date: 20110812
  Transmission Date: 20111222
  Serious: Yes (Hospitalization, Other)
  Sender: FDA-Public Use
  Company Number: None

PATIENT
  Age: 37 Year
  Sex: Female
  Weight: 115.66 kg

DRUGS (1)
  1. IV PREP PADS (OTC) [Suspect]
     Dosage: 1 PAD
     Route: 003

REACTIONS (8)
  - VIRAL INFECTION [None]
  - PRODUCT QUALITY ISSUE [None]
  - PNEUMONIA [None]
  - SINUSITIS [None]
  - MUMPS [None]
  - BRONCHITIS [None]
  - BACTERIAL INFECTION [None]
  - INFECTIOUS MONONUCLEOSIS [None]
